FAERS Safety Report 14162501 (Version 1)
Quarter: 2017Q4

REPORT INFORMATION
  Report Type: Spontaneous
  Country: US (occurrence: US)
  Receive Date: 20171106
  Receipt Date: 20171106
  Transmission Date: 20180321
  Serious: No
  Sender: FDA-Public Use
  Company Number: US-ASTRAZENECA-2017SF09021

PATIENT
  Sex: Female

DRUGS (7)
  1. BUTRANS [Concomitant]
     Active Substance: BUPRENORPHINE
     Dosage: 20UG/H
  2. CRESTOR [Suspect]
     Active Substance: ROSUVASTATIN CALCIUM
     Route: 048
  3. CELEBREX [Concomitant]
     Active Substance: CELECOXIB
  4. BUTRANS [Concomitant]
     Active Substance: BUPRENORPHINE
     Dosage: 20UG/H
  5. LYRICA [Concomitant]
     Active Substance: PREGABALIN
  6. BUTRANS [Concomitant]
     Active Substance: BUPRENORPHINE
     Dosage: 15UG/H
  7. DULOXETINE. [Concomitant]
     Active Substance: DULOXETINE

REACTIONS (1)
  - Oedema peripheral [Unknown]
